FAERS Safety Report 9239644 (Version 1)
Quarter: 2013Q2

REPORT INFORMATION
  Report Type: Spontaneous
  Country: US (occurrence: US)
  Receive Date: 20130418
  Receipt Date: 20130418
  Transmission Date: 20140414
  Serious: No
  Sender: FDA-Public Use
  Company Number: US-PFIZER INC-2013119727

PATIENT
  Age: 56 Year
  Sex: Female
  Weight: 54.42 kg

DRUGS (6)
  1. PRISTIQ [Suspect]
     Indication: DEPRESSION
     Dosage: 100 MG, 1X/DAY
     Route: 048
     Dates: start: 2012
  2. PRISTIQ [Suspect]
     Dosage: UNK
     Dates: end: 20130410
  3. VALIUM [Suspect]
     Dosage: UNK
     Dates: start: 201304
  4. BENADRYL [Suspect]
     Dosage: UNK
     Dates: start: 201304
  5. RANITIDINE [Suspect]
     Dosage: UNK
     Dates: start: 201304
  6. SYNTHROID [Concomitant]
     Indication: HYPOTHYROIDISM
     Dosage: 0.025 MG, 1X/DAY

REACTIONS (3)
  - Dizziness [Not Recovered/Not Resolved]
  - Nausea [Not Recovered/Not Resolved]
  - Tinnitus [Not Recovered/Not Resolved]
